FAERS Safety Report 20817443 (Version 2)
Quarter: 2022Q2

REPORT INFORMATION
  Report Type: Spontaneous
  Country: FR (occurrence: None)
  Receive Date: 20220512
  Receipt Date: 20220513
  Transmission Date: 20220721
  Serious: Yes (Hospitalization)
  Sender: FDA-Public Use
  Company Number: 2022A176054

PATIENT
  Age: 29 Year
  Sex: Female

DRUGS (3)
  1. ESOMEPRAZOLE [Suspect]
     Active Substance: ESOMEPRAZOLE
     Indication: Gastritis
     Dosage: 1 DOSAGE FORM, EVERY 12 HRS
     Route: 048
     Dates: start: 202202, end: 20220427
  2. QUETIAPINE [Suspect]
     Active Substance: QUETIAPINE
     Indication: Schizophrenia
     Dosage: 1 DOSAGE FORM, EVERY 12 HRS
     Route: 065
     Dates: start: 202201, end: 20220427
  3. TEGRETOL [Suspect]
     Active Substance: CARBAMAZEPINE
     Indication: Schizophrenia
     Dosage: 1 DOSAGE FORM, EVERY 12 HRS
     Route: 065
     Dates: start: 20220306, end: 20220427

REACTIONS (1)
  - Drug reaction with eosinophilia and systemic symptoms [Not Recovered/Not Resolved]

NARRATIVE: CASE EVENT DATE: 20220427
